FAERS Safety Report 20205585 (Version 1)
Quarter: 2021Q4

REPORT INFORMATION
  Report Type: Spontaneous
  Country: US (occurrence: US)
  Receive Date: 20211220
  Receipt Date: 20211220
  Transmission Date: 20220303
  Serious: No
  Sender: FDA-Public Use
  Company Number: US-BAUSCH-BL-2021-041358

PATIENT
  Age: 68 Year
  Sex: Female
  Weight: 86.260 kg

DRUGS (4)
  1. PROLENSA [Suspect]
     Active Substance: BROMFENAC SODIUM
     Indication: Eye inflammation
     Dosage: 1 GTT QD
     Route: 047
  2. AMLODIPINE [Concomitant]
     Active Substance: AMLODIPINE BESYLATE
     Indication: Product used for unknown indication
     Route: 048
  3. ATROPINE MF [Concomitant]
     Indication: Product used for unknown indication
     Dosage: AS DIRECTED
     Route: 047
  4. LEVOTHYROXINE [Concomitant]
     Active Substance: LEVOTHYROXINE
     Indication: Product used for unknown indication
     Dosage: 150 ?G QD
     Route: 048

REACTIONS (2)
  - Instillation site discolouration [Unknown]
  - Product colour issue [Unknown]
